FAERS Safety Report 19719759 (Version 1)
Quarter: 2021Q3

REPORT INFORMATION
  Report Type: Spontaneous
  Country: CN (occurrence: CN)
  Receive Date: 20210818
  Receipt Date: 20210818
  Transmission Date: 20211014
  Serious: Yes (Hospitalization)
  Sender: FDA-Public Use
  Company Number: CN-AMNEAL PHARMACEUTICALS-2021-AMRX-03382

PATIENT
  Age: 27 Year
  Sex: Male

DRUGS (2)
  1. TIGECYCLINE. [Suspect]
     Active Substance: TIGECYCLINE
     Indication: PANCREATITIS NECROTISING
     Dosage: 100 MILLIGRAM, LOADING DOSE
     Route: 065
  2. TIGECYCLINE. [Suspect]
     Active Substance: TIGECYCLINE
     Dosage: 50 MILLIGRAM, EVERY 12HR
     Route: 065

REACTIONS (1)
  - Leukocytosis [Unknown]
